FAERS Safety Report 22344021 (Version 4)
Quarter: 2023Q4

REPORT INFORMATION
  Report Type: Spontaneous
  Country: JP (occurrence: None)
  Receive Date: 20230519
  Receipt Date: 20231124
  Transmission Date: 20240110
  Serious: Yes (Hospitalization)
  Sender: FDA-Public Use
  Company Number: 2023A112229

PATIENT
  Age: 85 Year
  Sex: Female
  Weight: 36 kg

DRUGS (16)
  1. ONDEXXYA [Suspect]
     Active Substance: ANDEXANET ALFA
     Indication: Subdural haematoma
     Dosage: 1760.0MG UNKNOWN
     Route: 042
     Dates: start: 20230308, end: 20230308
  2. ONDEXXYA [Suspect]
     Active Substance: ANDEXANET ALFA
     Indication: Subdural haematoma
     Dosage: 880.0MG UNKNOWN
     Route: 042
     Dates: start: 20230308, end: 20230308
  3. EDOXABAN TOSYLATE [Suspect]
     Active Substance: EDOXABAN TOSYLATE
     Indication: Myocardial infarction
     Route: 048
     Dates: end: 20230308
  4. NICARDIPINE HYDROCHLORIDE [Concomitant]
     Active Substance: NICARDIPINE HYDROCHLORIDE
     Indication: Hypertension
     Dosage: DOSE UNKNOWN
     Route: 041
     Dates: start: 20230308, end: 20230308
  5. MANNITOL [Concomitant]
     Active Substance: MANNITOL
     Dosage: DOSE UNKNOWN
     Route: 065
     Dates: start: 20230308, end: 20230308
  6. AMLODIPINE [Concomitant]
     Active Substance: AMLODIPINE BESYLATE
     Route: 048
  7. NICORANDIL [Concomitant]
     Active Substance: NICORANDIL
     Indication: Myocardial infarction
     Route: 048
     Dates: end: 20230308
  8. ATORVASTATIN [Concomitant]
     Active Substance: ATORVASTATIN
     Indication: Dyslipidaemia
     Route: 048
     Dates: end: 20230308
  9. ASPIRIN [Concomitant]
     Active Substance: ASPIRIN
     Route: 048
     Dates: end: 20230308
  10. THEOPHYLLINE [Concomitant]
     Active Substance: THEOPHYLLINE
     Indication: Asthma
     Route: 048
     Dates: end: 20230308
  11. FAMOTIDINE [Concomitant]
     Active Substance: FAMOTIDINE
     Indication: Myocardial infarction
     Route: 048
     Dates: end: 20230308
  12. HERBALS [Concomitant]
     Active Substance: HERBALS
     Route: 048
     Dates: end: 20230308
  13. MAGNESIUM OXIDE [Concomitant]
     Active Substance: MAGNESIUM OXIDE
     Indication: Constipation
     Route: 048
     Dates: end: 20230308
  14. BELSOMRA [Concomitant]
     Active Substance: SUVOREXANT
     Indication: Insomnia
     Route: 048
     Dates: end: 20230308
  15. VIBEGRON [Concomitant]
     Active Substance: VIBEGRON
     Indication: Hypertonic bladder
     Route: 048
     Dates: end: 20230308
  16. LANSOPRAZOLE [Concomitant]
     Active Substance: LANSOPRAZOLE
     Indication: Subdural haematoma
     Route: 048
     Dates: start: 2023

REACTIONS (2)
  - Subdural haematoma [Recovering/Resolving]
  - Dehydration [Unknown]

NARRATIVE: CASE EVENT DATE: 20230101
